FAERS Safety Report 19688811 (Version 1)
Quarter: 2021Q3

REPORT INFORMATION
  Report Type: Spontaneous
  Country: FR (occurrence: FR)
  Receive Date: 20210812
  Receipt Date: 20210812
  Transmission Date: 20211014
  Serious: Yes (Hospitalization, Other)
  Sender: FDA-Public Use
  Company Number: FR-AUROBINDO-AUR-APL-2021-034575

PATIENT
  Age: 77 Year
  Sex: Male
  Weight: 70 kg

DRUGS (6)
  1. IMNOVID [Suspect]
     Active Substance: POMALIDOMIDE
     Indication: PLASMA CELL MYELOMA
     Dosage: 1 DOSAGE FORM, ONCE A DAY
     Route: 042
     Dates: start: 20210427, end: 202106
  2. PARACETAMOL [Suspect]
     Active Substance: ACETAMINOPHEN
     Indication: PREMEDICATION
     Dosage: 1 GRAM, CYCLICAL
     Route: 048
     Dates: start: 20210427, end: 20210801
  3. POLARAMINE [Suspect]
     Active Substance: DEXCHLORPHENIRAMINE MALEATE
     Indication: PREMEDICATION
     Dosage: 5 MILLIGRAM, CYCLICAL
     Route: 042
     Dates: start: 20210427, end: 20210801
  4. CIMETIDINE [Suspect]
     Active Substance: CIMETIDINE
     Indication: PREMEDICATION
     Dosage: 200 MILLIGRAM, CYCLICAL
     Route: 048
     Dates: start: 20210427, end: 20210801
  5. DEXAMETHASONE. [Suspect]
     Active Substance: DEXAMETHASONE
     Indication: PLASMA CELL MYELOMA
     Dosage: 20 MILLIGRAM, CYCLICAL
     Route: 042
     Dates: start: 20210427, end: 20210801
  6. SARCLISA [Suspect]
     Active Substance: ISATUXIMAB-IRFC
     Indication: PLASMA CELL MYELOMA
     Dosage: 700 MILLIGRAM, CYCLICAL
     Route: 042
     Dates: start: 20210427, end: 20210801

REACTIONS (1)
  - Cardiac failure [Recovering/Resolving]

NARRATIVE: CASE EVENT DATE: 20210614
